FAERS Safety Report 6316164-9 (Version None)
Quarter: 2009Q3

REPORT INFORMATION
  Report Type: 
  Country: None (occurrence: None)
  Receive Date: 20090820
  Receipt Date: 20090810
  Transmission Date: 20100115
  Serious: Yes (Life-Threatening)
  Sender: FDA-Public Use
  Company Number: PT-JNJFOC-20090805483

PATIENT
  Sex: Male

DRUGS (3)
  1. REMICADE [Suspect]
     Indication: CROHN'S DISEASE
     Route: 042
  2. PREDNISOLONE [Concomitant]
     Indication: CROHN'S DISEASE
     Dosage: DOSE 15
     Route: 048
  3. AZATHIOPRINE [Concomitant]
     Indication: CROHN'S DISEASE
     Dosage: DOSE 50
     Route: 048

REACTIONS (1)
  - UNEVALUABLE EVENT [None]
